FAERS Safety Report 10438596 (Version 3)
Quarter: 2014Q3

REPORT INFORMATION
  Report Type: Report from Study
  Country: CN (occurrence: CN)
  Receive Date: 20140908
  Receipt Date: 20140911
  Transmission Date: 20150326
  Serious: Yes (Death, Hospitalization)
  Sender: FDA-Public Use
  Company Number: PHHO2013CN014447

PATIENT
  Age: 64 Year
  Sex: Male
  Weight: 65 kg

DRUGS (1)
  1. ICL670A [Suspect]
     Active Substance: DEFERASIROX
     Indication: IRON OVERLOAD
     Dosage: UNK
     Route: 048
     Dates: start: 20131029

REACTIONS (4)
  - Respiratory tract infection [Fatal]
  - Respiratory failure [Fatal]
  - Pleural effusion [Fatal]
  - Upper respiratory fungal infection [Recovered/Resolved]

NARRATIVE: CASE EVENT DATE: 201403
